FAERS Safety Report 6042209-X (Version None)
Quarter: 2009Q1

REPORT INFORMATION
  Report Type: 
  Country: None (occurrence: None)
  Receive Date: 20090116
  Receipt Date: 20080715
  Transmission Date: 20090719
  Serious: No
  Sender: FDA-Public Use
  Company Number: US-BAYER-200812905BCC

PATIENT
  Age: 54 Year
  Sex: Female
  Weight: 62 kg

DRUGS (23)
  1. ALEVE [Suspect]
     Indication: BACK PAIN
     Dosage: UNIT DOSE: 220 MG
     Route: 048
     Dates: start: 20080601
  2. BAYER EXTRA STRENGTH ASPIRIN FOR MIGRAINE PAIN [Suspect]
     Indication: ISCHAEMIC HEART DISEASE PROPHYLAXIS
     Dosage: UNIT DOSE: 500 MG
     Route: 048
  3. EXTRA STRENGTH BAYER BACK AND BODY [Suspect]
     Indication: ISCHAEMIC HEART DISEASE PROPHYLAXIS
     Dosage: UNIT DOSE: 500 MG
     Route: 048
  4. ASPIRIN [Suspect]
     Indication: ISCHAEMIC HEART DISEASE PROPHYLAXIS
     Dosage: UNIT DOSE: 81 MG
     Route: 048
  5. ASPIRIN [Suspect]
     Dosage: UNIT DOSE: 81 MG
     Route: 048
     Dates: start: 20080714
  6. ASPIRIN [Suspect]
     Dosage: UNIT DOSE: 81 MG
     Route: 048
  7. AMOXICILLIN [Concomitant]
     Indication: PROPHYLAXIS
  8. CRESTOR [Concomitant]
     Dates: end: 20080601
  9. TYLENOL (CAPLET) [Concomitant]
  10. XANAX [Concomitant]
  11. VITAMIN D [Concomitant]
  12. VITAMIN B [Concomitant]
  13. TOPROL-XL [Concomitant]
  14. CENTRUM CARDIO [Concomitant]
  15. SCHIFF MELATONIN PLUS [Concomitant]
  16. SCHIFF MOVE FREE ADVANCED PLUS MSM [Concomitant]
  17. DOXYLAMINE SUCCINATE COSTCO SLEEP AID [Concomitant]
  18. SAM'S CLUB MEMBERS MARK VITAMIN D 1000IU WITH CALCIUM [Concomitant]
  19. NATURE MADE CHOLESOFF [Concomitant]
  20. MULTI-VITAMIN [Concomitant]
  21. VITAMIN B COMPLEX CAP [Concomitant]
  22. ALCOHOL [Concomitant]
  23. ALCOHOL [Concomitant]
     Dates: start: 20080714

REACTIONS (4)
  - DIARRHOEA [None]
  - FAECES DISCOLOURED [None]
  - SNEEZING [None]
  - TINNITUS [None]
